FAERS Safety Report 26153233 (Version 1)
Quarter: 2025Q4

REPORT INFORMATION
  Report Type: Spontaneous
  Country: US (occurrence: US)
  Receive Date: 20251214
  Receipt Date: 20251214
  Transmission Date: 20260119
  Serious: Yes (Hospitalization, Other)
  Sender: GRIFOLS
  Company Number: US-IGSA-BIG0039985

PATIENT
  Age: 31 Year
  Sex: Female
  Weight: 62.585 kg

DRUGS (44)
  1. GAMUNEX-C [Suspect]
     Active Substance: HUMAN IMMUNOGLOBULIN G
     Indication: Hypogammaglobulinaemia
     Dosage: UNK
     Route: 042
  2. GAMUNEX-C [Suspect]
     Active Substance: HUMAN IMMUNOGLOBULIN G
     Indication: Immunodeficiency
     Dosage: UNK
     Route: 058
  3. DUPIXENT [Concomitant]
     Active Substance: DUPILUMAB
     Dosage: 300 MILLIGRAM, Q.2WK.
  4. LIDOCAINE [Concomitant]
     Active Substance: LIDOCAINE
  5. EPINEPHRINE [Concomitant]
     Active Substance: EPINEPHRINE
  6. DIPHENHYDRAMINE HYDROCHLORIDE [Concomitant]
     Active Substance: DIPHENHYDRAMINE HYDROCHLORIDE
  7. ACETAMINOPHEN [Concomitant]
     Active Substance: ACETAMINOPHEN
  8. FLUVOXAMINE MALEATE [Concomitant]
     Active Substance: FLUVOXAMINE MALEATE
  9. FAMOTIDINE [Concomitant]
     Active Substance: FAMOTIDINE
  10. BECLOMETHASONE DIPROPIONATE [Concomitant]
     Active Substance: BECLOMETHASONE DIPROPIONATE
  11. UBROGEPANT [Concomitant]
     Active Substance: UBROGEPANT
  12. MONASCUS PURPUREUS [Concomitant]
     Active Substance: RED YEAST
  13. FLUDROCORTISONE ACETATE [Concomitant]
     Active Substance: FLUDROCORTISONE ACETATE
  14. SODIUM CHLORIDE [Concomitant]
     Active Substance: SODIUM CHLORIDE
  15. LEVALBUTEROL [Concomitant]
     Active Substance: LEVALBUTEROL
  16. TIOTROPIUM BROMIDE MONOHYDRATE [Concomitant]
     Active Substance: TIOTROPIUM BROMIDE MONOHYDRATE
  17. CORLANOR [Concomitant]
     Active Substance: IVABRADINE HYDROCHLORIDE
  18. MONTELUKAST SODIUM [Concomitant]
     Active Substance: MONTELUKAST SODIUM
  19. TOPIRAMATE [Concomitant]
     Active Substance: TOPIRAMATE
  20. MIDODRINE HYDROCHLORIDE [Concomitant]
     Active Substance: MIDODRINE HYDROCHLORIDE
  21. MAGNESIUM [Concomitant]
     Active Substance: MAGNESIUM
  22. DEXTROSE [Concomitant]
     Active Substance: DEXTROSE MONOHYDRATE
  23. VITAMIN B [Concomitant]
     Active Substance: VITAMIN B
  24. ZYRTEC [Concomitant]
     Active Substance: CETIRIZINE HYDROCHLORIDE
  25. TOBRAMYCIN [Concomitant]
     Active Substance: TOBRAMYCIN
  26. NALTREXONA [NALTREXONE HYDROCHLORIDE] [Concomitant]
  27. KETOTIFEN [Concomitant]
     Active Substance: KETOTIFEN
  28. EQUILIBRANT [Concomitant]
  29. BUDESONIDE [Concomitant]
     Active Substance: BUDESONIDE
  30. CEPHALEXIN [Concomitant]
     Active Substance: CEPHALEXIN
  31. FLUTICASONE [Concomitant]
     Active Substance: FLUTICASONE
     Dosage: UNK
  32. TRELEGY ELLIPTA [Concomitant]
     Active Substance: FLUTICASONE FUROATE\UMECLIDINIUM BROMIDE\VILANTEROL TRIFENATATE
  33. ATORVASTATIN [Concomitant]
     Active Substance: ATORVASTATIN
  34. OREGANO LEAF OIL [Concomitant]
     Active Substance: OREGANO LEAF OIL
  35. TOCOPHERYL ACETATE;UBIDECARENONE [Concomitant]
  36. PREDNISONE [Concomitant]
     Active Substance: PREDNISONE
     Dosage: UNK
  37. AZELASTINE HYDROCHLORIDE [Concomitant]
     Active Substance: AZELASTINE HYDROCHLORIDE
  38. THYROID [Concomitant]
     Active Substance: LEVOTHYROXINE\LIOTHYRONINE
  39. NEXLETOL [Concomitant]
     Active Substance: BEMPEDOIC ACID
  40. PAXLOVID [Concomitant]
  41. NYSTATIN [Concomitant]
     Active Substance: NYSTATIN
  42. QULIPTA [Concomitant]
     Active Substance: ATOGEPANT
  43. VITAMIN D3 [Concomitant]
     Active Substance: CHOLECALCIFEROL
  44. MAXITROL [CALCITRIOL;CALCIUM CITRATE] [Concomitant]

REACTIONS (46)
  - Mast cell activation syndrome [Unknown]
  - Abdominal infection [Unknown]
  - Sinusitis [Unknown]
  - Influenza [Unknown]
  - Fatigue [Unknown]
  - Bradycardia [Unknown]
  - Chest discomfort [Unknown]
  - Generalised oedema [Unknown]
  - Infusion site extravasation [Unknown]
  - Nausea [Unknown]
  - Bronchitis [Recovering/Resolving]
  - Pyrexia [Not Recovered/Not Resolved]
  - Pain in jaw [Unknown]
  - Food allergy [Unknown]
  - Migraine [Unknown]
  - Respiratory tract infection [Not Recovered/Not Resolved]
  - Productive cough [Not Recovered/Not Resolved]
  - Dyspnoea exertional [Not Recovered/Not Resolved]
  - Dysphonia [Not Recovered/Not Resolved]
  - COVID-19 [Not Recovered/Not Resolved]
  - Cough [Not Recovered/Not Resolved]
  - Body temperature decreased [Unknown]
  - Giardiasis [Unknown]
  - Hordeolum [Unknown]
  - Eye swelling [Not Recovered/Not Resolved]
  - Infection [Not Recovered/Not Resolved]
  - Infusion site bruising [Not Recovered/Not Resolved]
  - Pain [Unknown]
  - Nasopharyngitis [Unknown]
  - Nasal congestion [Unknown]
  - Wheezing [Unknown]
  - Neck pain [Unknown]
  - Oropharyngeal pain [Not Recovered/Not Resolved]
  - Diarrhoea [Unknown]
  - Headache [Recovering/Resolving]
  - Eye infection [Unknown]
  - Swelling face [Unknown]
  - Arthralgia [Unknown]
  - Rash [Unknown]
  - Asthma [Recovering/Resolving]
  - Drug ineffective [Unknown]
  - Infection parasitic [Unknown]
  - Anaemia [Unknown]
  - Fear of injection [Unknown]
  - Injection site erythema [Recovered/Resolved]
  - Injection site pain [Recovered/Resolved]

NARRATIVE: CASE EVENT DATE: 20190623
